FAERS Safety Report 7940038-0 (Version None)
Quarter: 2011Q4

REPORT INFORMATION
  Report Type: 
  Country: None (occurrence: None)
  Receive Date: 20111125
  Receipt Date: 20111109
  Transmission Date: 20120403
  Serious: Yes (Other)
  Sender: FDA-Public Use
  Company Number: PHHY2011NL099488

PATIENT
  Sex: Female
  Weight: 65 kg

DRUGS (1)
  1. SUMATRIPTAN [Suspect]
     Indication: MIGRAINE
     Dosage: 100 MG, UNK
     Route: 048
     Dates: start: 19900101

REACTIONS (4)
  - HAEMATOMA [None]
  - CARPAL TUNNEL SYNDROME [None]
  - BLOOD BLISTER [None]
  - PAIN [None]
